FAERS Safety Report 23792249 (Version 2)
Quarter: 2024Q2

REPORT INFORMATION
  Report Type: Report from Study
  Country: BR (occurrence: BR)
  Receive Date: 20240429
  Receipt Date: 20240508
  Transmission Date: 20240716
  Serious: Yes (Hospitalization, Other)
  Sender: FDA-Public Use
  Company Number: BR-TAKEDA-2024TUS038308

PATIENT
  Sex: Male
  Weight: 90 kg

DRUGS (1)
  1. HUMAN IMMUNOGLOBULIN G\HYALURONIDASE RECOMBINANT HUMAN [Suspect]
     Active Substance: HUMAN IMMUNOGLOBULIN G\HYALURONIDASE (HUMAN RECOMBINANT)
     Indication: Primary immunodeficiency syndrome
     Dosage: 45 GRAM, Q4WEEKS
     Route: 058
     Dates: start: 2021

REACTIONS (15)
  - Pharyngitis [Recovering/Resolving]
  - Pneumonia [Unknown]
  - Application site reaction [Unknown]
  - Sinusitis [Unknown]
  - Herpes virus infection [Unknown]
  - Genital herpes [Unknown]
  - Therapy non-responder [Unknown]
  - Infection [Unknown]
  - Drug ineffective [Unknown]
  - B-lymphocyte count decreased [Unknown]
  - Swelling [Unknown]
  - Abdominal pain [Unknown]
  - Oedema [Unknown]
  - Wrong technique in product usage process [Unknown]
  - Product administration error [Recovered/Resolved]

NARRATIVE: CASE EVENT DATE: 20210101
